FAERS Safety Report 9775931 (Version 1)
Quarter: 2013Q4

REPORT INFORMATION
  Report Type: Spontaneous
  Country: IT (occurrence: None)
  Receive Date: 20131219
  Receipt Date: 20131219
  Transmission Date: 20140711
  Serious: Yes (Other)
  Sender: FDA-Public Use
  Company Number: 2013AP010377

PATIENT
  Age: 97 Year
  Sex: Female

DRUGS (10)
  1. LEVOFLOXACIN [Suspect]
     Indication: URINARY TRACT INFECTION
     Route: 048
     Dates: start: 20130507, end: 20130511
  2. DELTACORTENE (PREDNISONE) [Concomitant]
  3. MEPRAL [Concomitant]
  4. IMOVANE (ZOPLONE) [Concomitant]
  5. LASIX [Concomitant]
  6. NORMIX (RIFAXIMIN) [Concomitant]
  7. TICLOPIDINE [Concomitant]
  8. ALLOPURINOL [Concomitant]
  9. INSULIN [Concomitant]
  10. FOSFOMYCIN [Concomitant]

REACTIONS (4)
  - Blood pressure decreased [None]
  - Bronchospasm [None]
  - Dyspnoea [None]
  - Tremor [None]
